FAERS Safety Report 25208818 (Version 2)
Quarter: 2025Q2

REPORT INFORMATION
  Report Type: Spontaneous
  Country: US (occurrence: US)
  Receive Date: 20250417
  Receipt Date: 20250507
  Transmission Date: 20250716
  Serious: No
  Sender: BOEHRINGER INGELHEIM
  Company Number: US-Komodo Health-a23aa000006rxEbAAI

PATIENT
  Age: 62 Year
  Sex: Female

DRUGS (2)
  1. CYLTEZO [Suspect]
     Active Substance: ADALIMUMAB-ADBM
     Indication: Cutaneous sarcoidosis
     Dates: start: 202502
  2. CYLTEZO [Suspect]
     Active Substance: ADALIMUMAB-ADBM
     Indication: Spondyloarthropathy

REACTIONS (5)
  - Spondyloarthropathy [Not Recovered/Not Resolved]
  - Condition aggravated [Not Recovered/Not Resolved]
  - Arthritis [Not Recovered/Not Resolved]
  - Off label use [Unknown]
  - Device malfunction [Unknown]

NARRATIVE: CASE EVENT DATE: 20250404
